FAERS Safety Report 6752664-5 (Version None)
Quarter: 2010Q2

REPORT INFORMATION
  Report Type: 
  Country: None (occurrence: None)
  Receive Date: 20100602
  Receipt Date: 20100524
  Transmission Date: 20101027
  Serious: Yes (Other)
  Sender: FDA-Public Use
  Company Number: US-AMGEN-QUU414629

PATIENT
  Sex: Male

DRUGS (17)
  1. EPOGEN [Suspect]
     Indication: RENAL FAILURE CHRONIC
  2. OXYCODONE [Concomitant]
  3. AMBIEN [Concomitant]
  4. XANAX [Concomitant]
  5. PHENERGAN [Concomitant]
  6. NOVOLOG [Concomitant]
     Route: 050
  7. NEXIUM [Concomitant]
  8. VITAMIN C [Concomitant]
  9. TPN [Concomitant]
  10. ZEMPLAR [Concomitant]
  11. REGLAN [Concomitant]
  12. PROVIGIL [Concomitant]
  13. COREG [Concomitant]
  14. CELEXA [Concomitant]
  15. LANTUS [Concomitant]
  16. LISINOPRIL [Concomitant]
  17. ASPIRIN [Concomitant]

REACTIONS (4)
  - HAEMOGLOBIN DECREASED [None]
  - IRON METABOLISM DISORDER [None]
  - SERUM FERRITIN INCREASED [None]
  - THERAPEUTIC RESPONSE DECREASED [None]
